FAERS Safety Report 20184630 (Version 1)
Quarter: 2021Q4

REPORT INFORMATION
  Report Type: Spontaneous
  Country: US (occurrence: US)
  Receive Date: 20211214
  Receipt Date: 20211214
  Transmission Date: 20220303
  Serious: No
  Sender: FDA-Public Use
  Company Number: US-NOVOPROD-816795

PATIENT
  Age: 61 Year
  Sex: Female

DRUGS (1)
  1. NOVOLIN R [Suspect]
     Active Substance: INSULIN HUMAN
     Indication: Product used for unknown indication
     Dosage: 3-4 TIMES A DAY VIAL, RELION
     Route: 058
     Dates: start: 2016

REACTIONS (1)
  - Rash [Not Recovered/Not Resolved]
